FAERS Safety Report 10255806 (Version 1)
Quarter: 2014Q2

REPORT INFORMATION
  Report Type: Spontaneous
  Country: CA (occurrence: CA)
  Receive Date: 20140624
  Receipt Date: 20140624
  Transmission Date: 20141212
  Serious: Yes (Other)
  Sender: FDA-Public Use
  Company Number: CA-009507513-1406CAN009425

PATIENT
  Age: 55 Year
  Sex: Male

DRUGS (1)
  1. TEMODAL [Suspect]
     Dosage: UNK
     Route: 048
     Dates: start: 201301, end: 201308

REACTIONS (2)
  - Brain operation [Recovered/Resolved]
  - Adverse event [Recovered/Resolved]
